FAERS Safety Report 10537484 (Version 1)
Quarter: 2014Q4

REPORT INFORMATION
  Report Type: Spontaneous
  Country: US (occurrence: None)
  Receive Date: 20141022
  Receipt Date: 20141022
  Transmission Date: 20150529
  Serious: Yes (Death, Hospitalization)
  Sender: FDA-Public Use
  Company Number: None

PATIENT
  Age: 91 Year
  Sex: Male
  Weight: 65.1 kg

DRUGS (6)
  1. LEVOFLOXACIN. [Suspect]
     Active Substance: LEVOFLOXACIN
     Indication: CHRONIC OBSTRUCTIVE PULMONARY DISEASE
     Route: 042
     Dates: start: 20140310, end: 20140311
  2. ERTAPENEM [Suspect]
     Active Substance: ERTAPENEM
     Route: 042
     Dates: start: 20140311, end: 20140314
  3. LEVOFLOXACIN. [Suspect]
     Active Substance: LEVOFLOXACIN
     Route: 042
     Dates: start: 20140310, end: 20140311
  4. ERTAPENEM [Suspect]
     Active Substance: ERTAPENEM
     Indication: CHRONIC OBSTRUCTIVE PULMONARY DISEASE
     Route: 042
     Dates: start: 20140311, end: 20140314
  5. LEVOFLOXACIN. [Suspect]
     Active Substance: LEVOFLOXACIN
     Indication: PNEUMONIA
     Route: 042
     Dates: start: 20140310, end: 20140311
  6. ERTAPENEM [Suspect]
     Active Substance: ERTAPENEM
     Indication: PNEUMONIA
     Route: 042
     Dates: start: 20140311, end: 20140314

REACTIONS (2)
  - Sepsis [None]
  - Clostridium difficile colitis [None]

NARRATIVE: CASE EVENT DATE: 20140324
